FAERS Safety Report 9465447 (Version 3)
Quarter: 2014Q1

REPORT INFORMATION
  Report Type: Spontaneous
  Country: US (occurrence: US)
  Receive Date: 20130820
  Receipt Date: 20140321
  Transmission Date: 20141002
  Serious: No
  Sender: FDA-Public Use
  Company Number: US-009507513-1308USA000678

PATIENT
  Age: 19 Year
  Sex: Female
  Weight: 84.81 kg

DRUGS (3)
  1. NEXPLANON [Suspect]
     Dosage: 1 ROD
     Route: 059
     Dates: start: 20130107, end: 20130730
  2. NEXPLANON [Suspect]
     Dosage: UNK
     Route: 059
     Dates: start: 20130730, end: 20140226
  3. NEXPLANON [Suspect]
     Dosage: UNK
     Route: 059
     Dates: start: 20140226

REACTIONS (4)
  - Device breakage [Recovered/Resolved]
  - Device breakage [Recovered/Resolved]
  - Limb injury [Recovered/Resolved]
  - Implant site pain [Recovered/Resolved]
